FAERS Safety Report 11852687 (Version 1)
Quarter: 2015Q4

REPORT INFORMATION
  Report Type: Spontaneous
  Country: CN (occurrence: CN)
  Receive Date: 20151218
  Receipt Date: 20151218
  Transmission Date: 20160305
  Serious: Yes (Other)
  Sender: FDA-Public Use
  Company Number: CN-BAXTER-2015BAX067204

PATIENT
  Age: 77 Year
  Sex: Female
  Weight: 52 kg

DRUGS (3)
  1. 20% MANNITOL INJECTION [Suspect]
     Active Substance: MANNITOL
     Indication: OFF LABEL USE
     Dosage: AT A RATE OF 120 GTT/MIN
     Route: 041
     Dates: start: 20150325, end: 20150325
  2. DEXAMETHASONE SODIUM PHOSPHATE. [Suspect]
     Active Substance: DEXAMETHASONE SODIUM PHOSPHATE
     Indication: INTERVERTEBRAL DISC PROTRUSION
     Dosage: AT A RATE OF 120 GTT/MIN
     Route: 041
     Dates: start: 20150325, end: 20150325
  3. 20% MANNITOL INJECTION [Suspect]
     Active Substance: MANNITOL
     Indication: INTERVERTEBRAL DISC PROTRUSION
     Route: 042

REACTIONS (4)
  - Tremor [Recovering/Resolving]
  - Chest discomfort [Recovering/Resolving]
  - Discomfort [Unknown]
  - Palpitations [Recovering/Resolving]

NARRATIVE: CASE EVENT DATE: 20150325
